FAERS Safety Report 5211623-4 (Version None)
Quarter: 2007Q1

REPORT INFORMATION
  Report Type: 
  Country: None (occurrence: None)
  Receive Date: 20070118
  Receipt Date: 20070108
  Transmission Date: 20070707
  Serious: Yes (Hospitalization)
  Sender: FDA-Public Use
  Company Number: PHRM2007FR00481

PATIENT
  Age: 37 Year
  Sex: Male

DRUGS (3)
  1. LIORESAL [Suspect]
     Indication: MULTIPLE SCLEROSIS
     Dosage: 10 MG, TID
     Route: 048
  2. LIORESAL [Suspect]
     Dosage: 250 MG WITHIN 3 OR 4 DAYS
     Route: 048
  3. ANXIOLYTICS [Suspect]
     Route: 048

REACTIONS (6)
  - BLOOD CREATINE PHOSPHOKINASE INCREASED [None]
  - COMA [None]
  - INTENTIONAL OVERDOSE [None]
  - MYOGLOBIN BLOOD INCREASED [None]
  - RENAL FAILURE [None]
  - RHABDOMYOLYSIS [None]
